FAERS Safety Report 8172222 (Version 3)
Quarter: 2012Q4

REPORT INFORMATION
  Report Type: Report from Study
  Country: JP (occurrence: JP)
  Receive Date: 20111007
  Receipt Date: 20121025
  Transmission Date: 20130627
  Serious: Yes (Hospitalization)
  Sender: FDA-Public Use
  Company Number: JP-SANOFI-AVENTIS-2011SA064973

PATIENT
  Age: 77 Year
  Sex: Male
  Weight: 55 kg

DRUGS (13)
  1. ELPLAT [Suspect]
     Indication: COLON CANCER
     Dosage: form- infusion solution injection
     Route: 041
     Dates: start: 20110726, end: 20110726
  2. ELPLAT [Suspect]
     Indication: COLON CANCER
     Dosage: form- infusion solution injection
     Route: 041
     Dates: start: 20110810, end: 20110810
  3. ELPLAT [Suspect]
     Indication: COLON CANCER
     Dosage: form- infusion solution injection
     Route: 041
     Dates: start: 20110824, end: 20110824
  4. 5-FU [Suspect]
     Indication: COLON CANCER
     Dosage: in bolus
     Route: 040
     Dates: start: 20110726, end: 20110726
  5. 5-FU [Suspect]
     Indication: COLON CANCER
     Route: 040
     Dates: start: 20110810, end: 20110810
  6. 5-FU [Suspect]
     Indication: COLON CANCER
     Dosage: continous infusion
     Route: 041
     Dates: start: 20110726, end: 20110726
  7. 5-FU [Suspect]
     Indication: COLON CANCER
     Route: 041
     Dates: start: 20110810, end: 20110810
  8. 5-FU [Suspect]
     Indication: COLON CANCER
     Route: 040
     Dates: start: 20110824, end: 20110824
  9. 5-FU [Suspect]
     Indication: COLON CANCER
     Route: 041
     Dates: start: 20110824, end: 20110824
  10. CALCIUM LEVOFOLINATE [Concomitant]
     Indication: RECTAL CANCER
     Route: 041
     Dates: start: 20110626, end: 20110824
  11. DEXAMETHASONE SODIUM PHOSPHATE [Concomitant]
     Indication: PREMEDICATION
     Route: 041
     Dates: start: 20110726, end: 20110824
  12. ALOXI [Concomitant]
     Indication: PREMEDICATION
     Route: 041
     Dates: start: 20110726, end: 20110824
  13. EMEND [Concomitant]
     Indication: PROPHYLAXIS
     Route: 048

REACTIONS (1)
  - Transient ischaemic attack [Recovered/Resolved]
